FAERS Safety Report 15251592 (Version 1)
Quarter: 2018Q4

REPORT INFORMATION
  Report Type: Other
  Country: US (occurrence: US)
  Receive Date: 20180807
  Receipt Date: 20180807
  Transmission Date: 20190204
  Serious: Yes (Other)
  Sender: FDA-Public Use
  Company Number: US-THE MENTHOLATUM COMPANY-2053394

PATIENT

DRUGS (1)
  1. EQUATE PAIN RELIEVING CREAM LIDOCAINE [Suspect]
     Active Substance: LIDOCAINE HYDROCHLORIDE
     Route: 061
     Dates: start: 20180706, end: 20180706

REACTIONS (1)
  - Chemical burn [Unknown]

NARRATIVE: CASE EVENT DATE: 20180706
